FAERS Safety Report 7990504-7 (Version None)
Quarter: 2011Q4

REPORT INFORMATION
  Report Type: 
  Country: None (occurrence: None)
  Receive Date: 20111219
  Receipt Date: 20101228
  Transmission Date: 20120403
  Serious: No
  Sender: FDA-Public Use
  Company Number: US-ASTRAZENECA-2010SE61029

PATIENT
  Sex: Female

DRUGS (3)
  1. LESCOL XL [Concomitant]
  2. CRESTOR [Suspect]
     Route: 048
  3. LIPITOR [Suspect]
     Route: 065

REACTIONS (4)
  - OEDEMA PERIPHERAL [None]
  - DEPRESSION [None]
  - SWOLLEN TONGUE [None]
  - HAND DEFORMITY [None]
